FAERS Safety Report 19838467 (Version 6)
Quarter: 2021Q4

REPORT INFORMATION
  Report Type: Spontaneous
  Country: GB (occurrence: GB)
  Receive Date: 20210916
  Receipt Date: 20211213
  Transmission Date: 20220303
  Serious: Yes (Life-Threatening, Hospitalization)
  Sender: FDA-Public Use
  Company Number: GB-002147023-NVSC2021GB201953

PATIENT
  Age: 78 Year
  Sex: Male
  Weight: 84 kg

DRUGS (26)
  1. OMEPRAZOLE [Suspect]
     Active Substance: OMEPRAZOLE
     Indication: Acidosis
     Route: 065
     Dates: start: 20080606, end: 20211010
  2. OMEPRAZOLE [Suspect]
     Active Substance: OMEPRAZOLE
     Route: 065
     Dates: start: 20210902, end: 20211010
  3. INCLISIRAN [Suspect]
     Active Substance: INCLISIRAN
     Indication: Arteriosclerosis
     Dosage: NO TREATMENT
     Route: 065
  4. PLACEBO [Suspect]
     Active Substance: UNSPECIFIED INGREDIENT
     Indication: Arteriosclerosis
     Dosage: NO TREATMENT
     Route: 065
  5. ENALAPRIL [Suspect]
     Active Substance: ENALAPRIL
     Indication: Blood pressure measurement
     Route: 065
     Dates: start: 20051006, end: 20210902
  6. ENALAPRIL [Suspect]
     Active Substance: ENALAPRIL
     Route: 065
     Dates: start: 20210902, end: 20211010
  7. AMOXICILLIN [Concomitant]
     Active Substance: AMOXICILLIN
     Indication: Lower respiratory tract infection
     Route: 065
     Dates: start: 20210823, end: 20210830
  8. BISOPROLOL [Concomitant]
     Active Substance: BISOPROLOL
     Indication: Myocardial ischaemia
     Route: 065
     Dates: start: 20190328
  9. CLOPIDOGREL [Concomitant]
     Active Substance: CLOPIDOGREL BISULFATE
     Indication: Myocardial ischaemia
     Route: 065
     Dates: start: 20080606
  10. DOXYCYCLINE [Concomitant]
     Active Substance: DOXYCYCLINE
     Indication: Lower respiratory tract infection
     Route: 065
     Dates: start: 20210831
  11. FELODIPINE [Concomitant]
     Active Substance: FELODIPINE
     Indication: Blood pressure measurement
     Route: 065
     Dates: start: 20201202, end: 20210902
  12. NICORANDIL [Concomitant]
     Active Substance: NICORANDIL
     Indication: Myocardial ischaemia
     Route: 065
     Dates: start: 20180504, end: 20211010
  13. SPIRONOLACTONE [Concomitant]
     Active Substance: SPIRONOLACTONE
     Indication: Blood pressure measurement
     Route: 065
     Dates: start: 20171215, end: 20210902
  14. ASPIRIN [Concomitant]
     Active Substance: ASPIRIN
     Indication: Postoperative care
     Route: 065
     Dates: start: 20211011
  15. ATORVASTATIN [Concomitant]
     Active Substance: ATORVASTATIN
     Indication: Product used for unknown indication
     Route: 065
     Dates: start: 20211010, end: 20211019
  16. ATORVASTATIN [Concomitant]
     Active Substance: ATORVASTATIN
  17. EZETIMIBE [Concomitant]
     Active Substance: EZETIMIBE
     Indication: Product used for unknown indication
     Route: 065
     Dates: start: 20211010
  18. FUROSEMIDE [Concomitant]
     Active Substance: FUROSEMIDE
     Indication: Fluid retention
     Route: 065
     Dates: start: 20211010, end: 20211024
  19. LANSOPRAZOLE [Concomitant]
     Active Substance: LANSOPRAZOLE
     Indication: Acidosis
     Route: 065
     Dates: start: 20211010
  20. POLYETHYLENE GLYCOL 3350\POTASSIUM CHLORIDE\SODIUM BICARBONATE\SODIUM [Concomitant]
     Active Substance: POLYETHYLENE GLYCOL 3350\POTASSIUM CHLORIDE\SODIUM BICARBONATE\SODIUM CHLORIDE
     Indication: Constipation
     Route: 065
     Dates: start: 20211010, end: 20211021
  21. ACETAMINOPHEN [Concomitant]
     Active Substance: ACETAMINOPHEN
     Indication: Pain
     Route: 065
     Dates: start: 20211010, end: 20211030
  22. RAMIPRIL [Concomitant]
     Active Substance: RAMIPRIL
     Indication: Blood pressure measurement
     Route: 065
     Dates: start: 20211010
  23. ALBUTEROL [Concomitant]
     Active Substance: ALBUTEROL
     Indication: Chronic obstructive pulmonary disease
     Route: 065
     Dates: start: 20211010
  24. SANDO-K [Concomitant]
     Indication: Blood potassium decreased
     Route: 065
     Dates: start: 20211016, end: 20211017
  25. SENNA [Concomitant]
     Active Substance: SENNA LEAF\SENNOSIDES\SENNOSIDES A AND B
     Indication: Constipation
     Route: 065
     Dates: start: 20211010, end: 20211021
  26. SODIUM CHLORIDE [Concomitant]
     Active Substance: SODIUM CHLORIDE
     Indication: Product used for unknown indication
     Route: 065

REACTIONS (4)
  - Dyspnoea [Unknown]
  - Respiratory tract infection [Recovered/Resolved]
  - Coronary artery disease [Recovered/Resolved]
  - Hyponatraemia [Unknown]

NARRATIVE: CASE EVENT DATE: 20210831
